FAERS Safety Report 7350768-X (Version None)
Quarter: 2011Q1

REPORT INFORMATION
  Report Type: 
  Country: None (occurrence: None)
  Receive Date: 20110314
  Receipt Date: 20110308
  Transmission Date: 20110831
  Serious: Yes (Hospitalization, Other)
  Sender: FDA-Public Use
  Company Number: US-JNJFOC-20100806220

PATIENT
  Sex: Male

DRUGS (2)
  1. PREDNISONE [Suspect]
     Indication: ILL-DEFINED DISORDER
     Route: 048
  2. LEVAQUIN [Suspect]
     Indication: PROSTATE INFECTION
     Route: 048

REACTIONS (8)
  - FEELING ABNORMAL [None]
  - MUSCLE RUPTURE [None]
  - NEUROPATHY PERIPHERAL [None]
  - RADIAL NERVE PALSY [None]
  - TENDON DISORDER [None]
  - ROTATOR CUFF SYNDROME [None]
  - TENDON RUPTURE [None]
  - MUSCLE ATROPHY [None]
